FAERS Safety Report 24546698 (Version 2)
Quarter: 2024Q4

REPORT INFORMATION
  Report Type: Spontaneous
  Country: PT (occurrence: PT)
  Receive Date: 20241024
  Receipt Date: 20241101
  Transmission Date: 20250115
  Serious: Yes (Death, Hospitalization, Other)
  Sender: GILEAD
  Company Number: US-GILEAD-2024-0691572

PATIENT
  Age: 33 Year
  Sex: Male

DRUGS (1)
  1. YESCARTA [Suspect]
     Active Substance: AXICABTAGENE CILOLEUCEL
     Indication: Diffuse large B-cell lymphoma
     Route: 065

REACTIONS (5)
  - Infection [Fatal]
  - Disease progression [Unknown]
  - Cytopenia [Unknown]
  - Immune effector cell-associated haematotoxicity [Recovering/Resolving]
  - Haemophagocytic lymphohistiocytosis [Recovering/Resolving]
